FAERS Safety Report 19360895 (Version 1)
Quarter: 2021Q2

REPORT INFORMATION
  Report Type: Report from Study
  Country: None (occurrence: US)
  Receive Date: 20210602
  Receipt Date: 20210602
  Transmission Date: 20210717
  Serious: No
  Sender: FDA-Public Use
  Company Number: US-MDD US OPERATIONS-MDD202012-002443

PATIENT
  Age: 70 Year
  Sex: Female

DRUGS (7)
  1. APOKYN [Suspect]
     Active Substance: APOMORPHINE HYDROCHLORIDE
     Route: 058
     Dates: end: 202012
  2. LEVOTHYROXINE. [Concomitant]
     Active Substance: LEVOTHYROXINE
     Dosage: NOT PROVIDED
  3. GABAPENTIN. [Concomitant]
     Active Substance: GABAPENTIN
     Dosage: NOT PROVIDED
  4. CARBIDOPA LEVODOPA [Concomitant]
     Active Substance: CARBIDOPA\LEVODOPA
     Dosage: NOT PROVIDED
  5. APOKYN [Suspect]
     Active Substance: APOMORPHINE HYDROCHLORIDE
     Indication: PARKINSON^S DISEASE
     Route: 058
     Dates: start: 2020
  6. AZILECT [Concomitant]
     Active Substance: RASAGILINE MESYLATE
     Dosage: NOT PROVIDED
  7. AMANTADINE. [Concomitant]
     Active Substance: AMANTADINE HYDROCHLORIDE
     Dosage: NOT PROVIDED

REACTIONS (7)
  - Palpitations [Recovered/Resolved]
  - Condition aggravated [Not Recovered/Not Resolved]
  - Hypertension [Recovered/Resolved]
  - Therapeutic product effect decreased [Unknown]
  - Urinary tract infection [Not Recovered/Not Resolved]
  - Loss of consciousness [Recovered/Resolved]
  - Psychomotor hyperactivity [Unknown]

NARRATIVE: CASE EVENT DATE: 2020
